FAERS Safety Report 22341800 (Version 1)
Quarter: 2023Q2

REPORT INFORMATION
  Report Type: Spontaneous
  Country: US (occurrence: US)
  Receive Date: 20230518
  Receipt Date: 20230518
  Transmission Date: 20230722
  Serious: No
  Sender: FDA-Public Use
  Company Number: US-GALDERMA-US2023005153

PATIENT

DRUGS (15)
  1. PROACTIV MD ADAPALENE ACNE TREATMENT [Suspect]
     Active Substance: ADAPALENE
     Indication: Acne
     Dosage: 1 DOSAGE FORM, BID, NICKEL SIZE
     Route: 061
     Dates: start: 202303, end: 202303
  2. PROACTIV MD ADAPALENE ACNE TREATMENT [Suspect]
     Active Substance: ADAPALENE
     Indication: Dry skin
  3. PROACTIV MD ADAPALENE ACNE TREATMENT [Suspect]
     Active Substance: ADAPALENE
     Indication: Seborrhoea
  4. Proactiv MD Ultra Gentle Cleanser [Concomitant]
     Indication: Acne
     Dosage: 1 DOSAGE FORM, BID, NICKEL SIZE 2 OR MORE TIMES A DAY
     Route: 061
     Dates: start: 202303, end: 202303
  5. Proactiv MD Ultra Gentle Cleanser [Concomitant]
     Indication: Dry skin
  6. Proactiv MD Ultra Gentle Cleanser [Concomitant]
     Indication: Seborrhoea
  7. Proactiv MD Ultra Hydrating Moisturizer [Concomitant]
     Indication: Acne
     Dosage: 1 DOSAGE FORM, BID, NICKEL SIZE 2 OR MORE TIMES A DAY
     Route: 061
     Dates: start: 202303, end: 202303
  8. Proactiv MD Ultra Hydrating Moisturizer [Concomitant]
     Indication: Dry skin
  9. Proactiv MD Ultra Hydrating Moisturizer [Concomitant]
     Indication: Seborrhoea
  10. Proactiv Post Acne Dark Mark Relief [Concomitant]
     Indication: Acne
     Dosage: 1 DOSAGE FORM, BID, NICKEL SIZE 2 OR MORE TIMES A DAY
     Route: 061
     Dates: start: 202303, end: 202303
  11. Proactiv Post Acne Dark Mark Relief [Concomitant]
     Indication: Dry skin
  12. Proactiv Post Acne Dark Mark Relief [Concomitant]
     Indication: Seborrhoea
  13. Proactiv Post Acne Scar Gel [Concomitant]
     Indication: Acne
     Dosage: 1 DOSAGE FORM, BID, NICKEL SIZE 2 OR MORE TIMES A DAY
     Route: 061
     Dates: start: 202303, end: 202303
  14. Proactiv Post Acne Scar Gel [Concomitant]
     Indication: Dry skin
  15. Proactiv Post Acne Scar Gel [Concomitant]
     Indication: Seborrhoea

REACTIONS (4)
  - Skin burning sensation [Recovering/Resolving]
  - Dry skin [Recovering/Resolving]
  - Overdose [Recovered/Resolved]
  - Inappropriate schedule of product administration [Recovered/Resolved]

NARRATIVE: CASE EVENT DATE: 20230301
